FAERS Safety Report 24913319 (Version 1)
Quarter: 2025Q1

REPORT INFORMATION
  Report Type: Spontaneous
  Country: CN (occurrence: CN)
  Receive Date: 20250201
  Receipt Date: 20250201
  Transmission Date: 20250408
  Serious: Yes (Life-Threatening, Hospitalization, Other)
  Sender: RELIANCE GENEMEDIX
  Company Number: CN-Reliance-000440

PATIENT
  Age: 7 Decade
  Sex: Female
  Weight: 70 kg

DRUGS (2)
  1. CAPECITABINE [Suspect]
     Active Substance: CAPECITABINE
     Indication: Rectal adenocarcinoma
     Dosage: DOSING 825 MG/M2, 1.5 G P.O. BID D 1-5/W
     Route: 048
  2. CAPECITABINE [Suspect]
     Active Substance: CAPECITABINE
     Indication: Metastases to lymph nodes
     Dosage: DOSING 825 MG/M2, 1.5 G P.O. BID D 1-5/W
     Route: 048

REACTIONS (10)
  - Diarrhoea haemorrhagic [Recovered/Resolved]
  - Mouth ulceration [Recovered/Resolved]
  - Nausea [Recovered/Resolved]
  - Vomiting [Recovered/Resolved]
  - Productive cough [Recovered/Resolved]
  - Mental disorder [Recovered/Resolved]
  - Myelosuppression [Recovered/Resolved]
  - Prothrombin time prolonged [Recovered/Resolved]
  - Procalcitonin increased [Recovered/Resolved]
  - Pancytopenia [Recovered/Resolved]
